FAERS Safety Report 17754722 (Version 1)
Quarter: 2020Q2

REPORT INFORMATION
  Report Type: Spontaneous
  Country: CA (occurrence: CA)
  Receive Date: 20200507
  Receipt Date: 20200507
  Transmission Date: 20200714
  Serious: Yes (Hospitalization)
  Sender: FDA-Public Use
  Company Number: CA-ACTELION-A-NJ2020-203224

PATIENT
  Age: 68 Year
  Sex: Female

DRUGS (20)
  1. SALBUTAMOL [Concomitant]
     Active Substance: ALBUTEROL
  2. RABEPRAZOLE [Concomitant]
     Active Substance: RABEPRAZOLE
  3. PERINDOPRIL [Concomitant]
     Active Substance: PERINDOPRIL
  4. FUROSEMIDE. [Concomitant]
     Active Substance: FUROSEMIDE
  5. AMLODIPINE [Concomitant]
     Active Substance: AMLODIPINE BESYLATE
  6. MULTI VITAMIN [Concomitant]
     Active Substance: VITAMINS
  7. ATENOLOL. [Concomitant]
     Active Substance: ATENOLOL
  8. T3 [Concomitant]
     Active Substance: LIOTHYRONINE SODIUM
  9. FOLIC ACID. [Concomitant]
     Active Substance: FOLIC ACID
  10. LEFLUNOMIDE. [Concomitant]
     Active Substance: LEFLUNOMIDE
  11. FORXIGA [Concomitant]
     Active Substance: DAPAGLIFLOZIN
  12. BREO ELLIPTA [Concomitant]
     Active Substance: FLUTICASONE FUROATE\VILANTEROL TRIFENATATE
  13. GLICLAZIDE [Concomitant]
     Active Substance: GLICLAZIDE
  14. JANUMET [Concomitant]
     Active Substance: METFORMIN HYDROCHLORIDE\SITAGLIPTIN PHOSPHATE
  15. OMEGA 3 [Concomitant]
     Active Substance: OMEGA-3 FATTY ACIDS
  16. OPSUMIT [Suspect]
     Active Substance: MACITENTAN
     Indication: PULMONARY ARTERIAL HYPERTENSION
     Dosage: 10 MG
     Route: 048
     Dates: start: 20200303
  17. EZETIMIBE. [Concomitant]
     Active Substance: EZETIMIBE
  18. METHOTREXATE. [Concomitant]
     Active Substance: METHOTREXATE
  19. ROSUVASTATIN. [Concomitant]
     Active Substance: ROSUVASTATIN
  20. HYDROCORTISONE. [Concomitant]
     Active Substance: HYDROCORTISONE
     Route: 061

REACTIONS (9)
  - Immunisation [Unknown]
  - Rash macular [Not Recovered/Not Resolved]
  - Rash pruritic [Not Recovered/Not Resolved]
  - Pruritus [Unknown]
  - Platelet count decreased [Recovered/Resolved]
  - Haemoglobin abnormal [Recovering/Resolving]
  - Rash erythematous [Not Recovered/Not Resolved]
  - Insomnia [Not Recovered/Not Resolved]
  - Blood test abnormal [Recovering/Resolving]

NARRATIVE: CASE EVENT DATE: 202003
